FAERS Safety Report 23527481 (Version 1)
Quarter: 2024Q1

REPORT INFORMATION
  Report Type: Spontaneous
  Country: US (occurrence: US)
  Receive Date: 20240215
  Receipt Date: 20240215
  Transmission Date: 20240410
  Serious: Yes (Other)
  Sender: FDA-Public Use
  Company Number: US-PFIZER INC-202400040769

PATIENT
  Age: 80 Year
  Sex: Male
  Weight: 59.8 kg

DRUGS (7)
  1. INLYTA [Suspect]
     Active Substance: AXITINIB
     Indication: Metastatic renal cell carcinoma
     Dosage: TAKE 2TABS (2MG) ONCE EVERY12HRS; TAKE AT EVENLY SPACED INTERVALS W/OR W/O FOOD, W/FULL GLASS WATER
     Route: 048
     Dates: start: 20231026
  2. INLYTA [Suspect]
     Active Substance: AXITINIB
     Indication: Renal mass
     Dosage: TAKE 1 TAB (5MG) ONCE EVERY 12HRS; TAKE AT EVENLY SPACED INTERVALS W/OR W/O FOOD, W/FULL GLASS WATER
     Route: 048
  3. INLYTA [Suspect]
     Active Substance: AXITINIB
     Indication: Renal vein thrombosis
     Dosage: 7 MG, BID (DAILY; TAKE AT EVENS INTERVALS)
     Route: 048
     Dates: start: 20240118
  4. INLYTA [Suspect]
     Active Substance: AXITINIB
     Indication: Renal cancer
  5. INLYTA [Suspect]
     Active Substance: AXITINIB
     Indication: Metastases to liver
  6. SOLU-MEDROL [Suspect]
     Active Substance: METHYLPREDNISOLONE SODIUM SUCCINATE
     Dosage: 125 MG, (ONCE AS NEEDED, 5 OF 35 CYCLES)
     Route: 042
  7. PEMBROLIZUMAB [Suspect]
     Active Substance: PEMBROLIZUMAB
     Indication: Metastatic renal cell carcinoma
     Dosage: UNK, CYCLIC (EVERY 21 DAYS)
     Dates: start: 20231026

REACTIONS (1)
  - Post herpetic neuralgia [Unknown]
